FAERS Safety Report 5409712-4 (Version None)
Quarter: 2007Q3

REPORT INFORMATION
  Report Type: 
  Country: None (occurrence: None)
  Receive Date: 20070809
  Receipt Date: 20070731
  Transmission Date: 20080115
  Serious: Yes (Hospitalization)
  Sender: FDA-Public Use
  Company Number: A0667098A

PATIENT
  Age: 64 Year
  Sex: Female
  Weight: 71.3 kg

DRUGS (2)
  1. LAPATINIB [Suspect]
     Dosage: 1250MG PER DAY
     Route: 048
     Dates: start: 20070305
  2. CAPECITABINE [Suspect]
     Dosage: 1000MGM2 PER DAY
     Route: 048
     Dates: start: 20070305

REACTIONS (2)
  - HERPES ZOSTER [None]
  - INFECTION [None]
